FAERS Safety Report 9058374 (Version 3)
Quarter: 2013Q2

REPORT INFORMATION
  Report Type: Spontaneous
  Country: ES (occurrence: ES)
  Receive Date: 20130211
  Receipt Date: 20130503
  Transmission Date: 20140414
  Serious: Yes (Death, Hospitalization)
  Sender: FDA-Public Use
  Company Number: ES-JNJFOC-20130201388

PATIENT
  Age: 51 Year
  Sex: Male
  Weight: 78 kg

DRUGS (9)
  1. REMICADE [Suspect]
     Indication: ANKYLOSING SPONDYLITIS
     Dosage: AGE AT START OF INFLIXIMAB THERAPY: 42 YEARS??APPROXIMATE TOTAL NUMBER OF INFUSIONS RECEIVED: 65
     Route: 042
     Dates: start: 20011005
  2. REMICADE [Suspect]
     Indication: ANKYLOSING SPONDYLITIS
     Dosage: AGE AT START OF INFLIXIMAB THERAPY: 42 YEARS??APPROXIMATE TOTAL NUMBER OF INFUSIONS RECEIVED: 65
     Route: 042
     Dates: start: 20100302, end: 20100302
  3. OMEPRAZOLE [Concomitant]
     Indication: GASTROINTESTINAL DISORDER THERAPY
     Route: 048
     Dates: start: 20050323, end: 20100416
  4. LISINOPRIL HYDROCHLOROTHIAZIDE [Concomitant]
     Indication: HYPERTENSION
     Dosage: 20/12.5 MG/DAY
     Route: 065
     Dates: start: 200104
  5. CALCIUM PIDOLATE [Concomitant]
     Indication: OSTEOPOROSIS
     Route: 065
     Dates: start: 200101
  6. VITAMIN D [Concomitant]
     Indication: OSTEOPOROSIS
     Route: 065
     Dates: start: 200101
  7. FUROSEMIDE [Concomitant]
     Indication: HYPERTENSION
     Route: 048
     Dates: start: 20100317, end: 20100416
  8. LOSARTAN [Concomitant]
     Indication: HYPERTENSION
     Route: 048
     Dates: start: 20100317, end: 20100416
  9. VERAPAMIL [Concomitant]
     Indication: HYPERTENSION
     Route: 048
     Dates: start: 20100317, end: 20100416

REACTIONS (8)
  - Multi-organ failure [Fatal]
  - Atrioventricular block complete [Recovered/Resolved]
  - Inappropriate antidiuretic hormone secretion [Recovered/Resolved]
  - Myelodysplastic syndrome [Unknown]
  - Lung carcinoma cell type unspecified stage IV [Fatal]
  - Abdominal symptom [Unknown]
  - Weight decreased [Unknown]
  - Constipation [Unknown]
